FAERS Safety Report 6568085-4 (Version None)
Quarter: 2010Q1

REPORT INFORMATION
  Report Type: 
  Country: None (occurrence: None)
  Receive Date: 20100203
  Receipt Date: 20100118
  Transmission Date: 20100710
  Serious: No
  Sender: FDA-Public Use
  Company Number: US-BAYER-200942629NA

PATIENT
  Age: 19 Year
  Sex: Female
  Weight: 68 kg

DRUGS (5)
  1. MIRENA [Suspect]
     Indication: DRUG USE FOR UNKNOWN INDICATION
     Dosage: CONTINUOUS
     Route: 015
     Dates: start: 20060401
  2. PROMETHAZINE [Concomitant]
  3. NAPROXEN [Concomitant]
  4. ZONEGRAN [Concomitant]
  5. MUSCLE RELAXER [Concomitant]

REACTIONS (7)
  - AMENORRHOEA [None]
  - HEADACHE [None]
  - IRRITABILITY [None]
  - MIGRAINE [None]
  - NAUSEA [None]
  - PREGNANCY WITH CONTRACEPTIVE DEVICE [None]
  - SWELLING FACE [None]
